FAERS Safety Report 7150341-2 (Version None)
Quarter: 2010Q4

REPORT INFORMATION
  Report Type: 
  Country: None (occurrence: None)
  Receive Date: 20101123
  Receipt Date: 20101108
  Transmission Date: 20110411
  Serious: Yes (Death, Hospitalization, Other)
  Sender: FDA-Public Use
  Company Number: 2010004584

PATIENT
  Age: 64 Year
  Sex: Female

DRUGS (7)
  1. ERLOTINIB HYDROCHLORIDE [Suspect]
     Indication: NON-SMALL CELL LUNG CANCER
     Dosage: (150 MG,QD),ORAL
     Route: 048
     Dates: start: 20101004
  2. DASATIMIB [Suspect]
     Indication: NON-SMALL CELL LUNG CANCER
     Dosage: (70 MG,QD),ORAL
     Route: 048
     Dates: start: 20101004
  3. MECLIZINE [Concomitant]
  4. MULTIVITAMIN (MULTIVITAMIN) [Concomitant]
  5. ONDANSETRON [Concomitant]
  6. TRAZODONE HCL [Concomitant]
  7. VITAMIN D [Concomitant]

REACTIONS (8)
  - ANXIETY [None]
  - MALIGNANT NEOPLASM PROGRESSION [None]
  - METASTASES TO CENTRAL NERVOUS SYSTEM [None]
  - OEDEMA PERIPHERAL [None]
  - PANIC ATTACK [None]
  - PLEURAL EFFUSION [None]
  - RESPIRATORY FAILURE [None]
  - TRACHEOBRONCHITIS [None]
